FAERS Safety Report 9133365 (Version 1)
Quarter: 2013Q1

REPORT INFORMATION
  Report Type: Report from Study
  Country: US (occurrence: US)
  Receive Date: 20130129
  Receipt Date: 20130129
  Transmission Date: 20140127
  Serious: No
  Sender: FDA-Public Use
  Company Number: US-ABBOTT-12P-163-0930570-00

PATIENT
  Age: 48 Year
  Sex: Female

DRUGS (11)
  1. HUMIRA 40 MG/0.8 ML PEN [Suspect]
     Indication: CROHN^S DISEASE
     Dates: start: 20120316
  2. AMBIEN [Concomitant]
     Indication: INSOMNIA
     Dosage: AT BEDTIME
  3. ASACOL [Concomitant]
     Indication: PRODUCT USED FOR UNKNOWN INDICATION
     Dosage: 400MG 4 TABS TWICE DAILY
  4. IMODIUM [Concomitant]
     Indication: CROHN^S DISEASE
  5. CLONAZEPAM [Concomitant]
     Indication: PRODUCT USED FOR UNKNOWN INDICATION
  6. LITHIUM [Concomitant]
     Indication: BIPOLAR DISORDER
     Dosage: 75MG DAILY FOR A LONG TIME
  7. SEROQUEL [Concomitant]
     Indication: BIPOLAR DISORDER
     Dosage: AT BEDTIME
  8. SYNTHROID [Concomitant]
     Indication: HYPOTHYROIDISM
  9. ZOLOFT [Concomitant]
     Indication: BIPOLAR DISORDER
  10. VITAMIN D [Concomitant]
     Indication: PRODUCT USED FOR UNKNOWN INDICATION
  11. ENTOCORT [Concomitant]
     Indication: PRODUCT USED FOR UNKNOWN INDICATION

REACTIONS (3)
  - Injection site bruising [Not Recovered/Not Resolved]
  - Injection site reaction [Not Recovered/Not Resolved]
  - Injection site swelling [Not Recovered/Not Resolved]
